FAERS Safety Report 20730106 (Version 2)
Quarter: 2022Q2

REPORT INFORMATION
  Report Type: Spontaneous
  Country: US (occurrence: US)
  Receive Date: 20220420
  Receipt Date: 20220518
  Transmission Date: 20220721
  Serious: No
  Sender: FDA-Public Use
  Company Number: US-PFIZER INC-202200452934

PATIENT
  Age: 75 Year
  Sex: Female
  Weight: 68.04 kg

DRUGS (9)
  1. LYRICA [Suspect]
     Active Substance: PREGABALIN
     Indication: Complex regional pain syndrome
     Dosage: 25 MG, 2X/DAY (25MG TWICE PER DAY)
     Route: 048
     Dates: start: 2014
  2. AMLODIPINE [Concomitant]
     Active Substance: AMLODIPINE BESYLATE
     Indication: Hypertension
     Dosage: 2.5 MG
  3. WARFARIN [Concomitant]
     Active Substance: WARFARIN
     Indication: Cardiac ablation
     Dosage: 2.5 MG
  4. WARFARIN [Concomitant]
     Active Substance: WARFARIN
     Indication: Atrial fibrillation
     Dosage: 2.5 MG
  5. COUMADIN [Concomitant]
     Active Substance: WARFARIN SODIUM
     Indication: Cardiac ablation
     Dosage: 5 MG
  6. COUMADIN [Concomitant]
     Active Substance: WARFARIN SODIUM
     Indication: Atrial fibrillation
  7. PROPAFENONE [Concomitant]
     Active Substance: PROPAFENONE
     Indication: Cardiac ablation
     Dosage: 150 MG
  8. METOPROLOL [Concomitant]
     Active Substance: METOPROLOL
     Indication: Cardiac ablation
     Dosage: 25 MG
  9. ZETIA [Concomitant]
     Active Substance: EZETIMIBE
     Indication: Blood cholesterol increased
     Dosage: 10 MG

REACTIONS (3)
  - Illness [Unknown]
  - Skin burning sensation [Recovering/Resolving]
  - Off label use [Unknown]

NARRATIVE: CASE EVENT DATE: 20220319
